FAERS Safety Report 16044300 (Version 5)
Quarter: 2019Q3

REPORT INFORMATION
  Report Type: Spontaneous
  Country: US (occurrence: US)
  Receive Date: 20190306
  Receipt Date: 20190830
  Transmission Date: 20191004
  Serious: Yes (Death, Hospitalization, Other)
  Sender: FDA-Public Use
  Company Number: US-GILEAD-2019-0394154

PATIENT
  Age: 42 Year
  Sex: Male
  Weight: 97.3 kg

DRUGS (37)
  1. ETOPOSIDE. [Concomitant]
     Active Substance: ETOPOSIDE
     Indication: HAEMOPHAGOCYTIC LYMPHOHISTIOCYTOSIS
     Dosage: 100 MG/M2, QD
     Dates: start: 20181226, end: 20181228
  2. ETOPOSIDE. [Concomitant]
     Active Substance: ETOPOSIDE
     Dosage: 180 MG, TWICE WEEKLY
     Dates: start: 20190201, end: 20190201
  3. ETOPOSIDE. [Concomitant]
     Active Substance: ETOPOSIDE
     Dosage: 180 MG, TWICE WEEKLY
     Dates: start: 20190205, end: 20190205
  4. DEXAMETHASONE. [Concomitant]
     Active Substance: DEXAMETHASONE
     Dosage: 5 MG/M2
     Dates: start: 20181229, end: 20190107
  5. DEXAMETHASONE. [Concomitant]
     Active Substance: DEXAMETHASONE
     Dosage: 10 MG, ONCE
     Route: 042
     Dates: start: 20190127, end: 20190127
  6. ZOVIRAX [Concomitant]
     Active Substance: ACYCLOVIR
  7. ETOPOSIDE. [Concomitant]
     Active Substance: ETOPOSIDE
     Dosage: DOSE-REDUCED
     Dates: start: 20190306
  8. DEXAMETHASONE. [Concomitant]
     Active Substance: DEXAMETHASONE
     Dosage: 10 MG IV TITRATED DOWN TO 12 MG ORAL BY 19-FEB-2019
     Dates: start: 20190205
  9. ATROVENT [Concomitant]
     Active Substance: IPRATROPIUM BROMIDE
  10. BACTRIM DS [Concomitant]
     Active Substance: SULFAMETHOXAZOLE\TRIMETHOPRIM
  11. DEXAMETHASONE. [Concomitant]
     Active Substance: DEXAMETHASONE
     Dosage: 12 MG, QD
     Route: 048
     Dates: start: 201902
  12. XYLOCAINE [Concomitant]
     Active Substance: LIDOCAINE HYDROCHLORIDE
  13. NOVOLOG [Concomitant]
     Active Substance: INSULIN ASPART
  14. XOPENEX [Concomitant]
     Active Substance: LEVALBUTEROL HYDROCHLORIDE
  15. VERSED [Concomitant]
     Active Substance: MIDAZOLAM HYDROCHLORIDE
  16. NEBUPENT [Concomitant]
     Active Substance: PENTAMIDINE ISETHIONATE
  17. ETOPOSIDE. [Concomitant]
     Active Substance: ETOPOSIDE
     Indication: LYMPHOMA
     Dosage: 180 MG, TWICE WEEKLY
     Dates: start: 20190130, end: 20190130
  18. ETOPOSIDE. [Concomitant]
     Active Substance: ETOPOSIDE
     Dosage: 180 MG
     Dates: start: 20190208, end: 20190208
  19. ETOPOSIDE. [Concomitant]
     Active Substance: ETOPOSIDE
     Dosage: 180 MG, TWICE WEEKLY
     Dates: start: 20190211, end: 20190211
  20. ETOPOSIDE. [Concomitant]
     Active Substance: ETOPOSIDE
     Dosage: DOSE REDUCED, Q1WK
     Dates: start: 20190226, end: 20190226
  21. SODIUM CHLORIDE. [Concomitant]
     Active Substance: SODIUM CHLORIDE
  22. CASPOFUNGIN [Concomitant]
     Active Substance: CASPOFUNGIN
  23. KEPPRA [Concomitant]
     Active Substance: LEVETIRACETAM
  24. YESCARTA [Suspect]
     Active Substance: AXICABTAGENE CILOLEUCEL
     Indication: DIFFUSE LARGE B-CELL LYMPHOMA
     Dosage: 2 X 10 6, ONCE
     Route: 042
     Dates: start: 20190114, end: 20190114
  25. SUBLIMAZE [FENTANYL] [Concomitant]
  26. ETOPOSIDE. [Concomitant]
     Active Substance: ETOPOSIDE
     Dosage: 180 MG, Q1WK
     Dates: start: 20190215, end: 20190215
  27. DEXAMETHASONE. [Concomitant]
     Active Substance: DEXAMETHASONE
     Indication: HAEMOPHAGOCYTIC LYMPHOHISTIOCYTOSIS
     Dosage: 10 MG/M2
     Dates: start: 20181226, end: 20181228
  28. DEXAMETHASONE. [Concomitant]
     Active Substance: DEXAMETHASONE
     Dosage: TAPERED AFTER PEMBROLIZUMAB GIVEN
  29. MAGNESIUM SULFATE. [Concomitant]
     Active Substance: MAGNESIUM SULFATE
  30. MAXIPIME [Concomitant]
     Active Substance: CEFEPIME HYDROCHLORIDE
  31. LEVAQUIN [Concomitant]
     Active Substance: LEVOFLOXACIN
     Dosage: UNK
  32. LEVAQUIN [Concomitant]
     Active Substance: LEVOFLOXACIN
     Dosage: 500 MG
     Route: 048
     Dates: start: 201902
  33. CYCLOPHOSPHAMIDE. [Suspect]
     Active Substance: CYCLOPHOSPHAMIDE
     Indication: BONE MARROW CONDITIONING REGIMEN
     Dosage: UNK
     Route: 065
     Dates: start: 201901, end: 201901
  34. FLUDARABINE [Suspect]
     Active Substance: FLUDARABINE PHOSPHATE
     Indication: BONE MARROW CONDITIONING REGIMEN
     Dosage: UNK
     Route: 065
     Dates: start: 201901, end: 201901
  35. DEXAMETHASONE. [Concomitant]
     Active Substance: DEXAMETHASONE
     Dosage: 10 MG, TID (X9 DOSES)
     Route: 042
     Dates: start: 20190121
  36. LOPRESSOR [Concomitant]
     Active Substance: METOPROLOL TARTRATE
  37. PROTONIX [Concomitant]
     Active Substance: PANTOPRAZOLE SODIUM

REACTIONS (14)
  - Disseminated intravascular coagulation [Unknown]
  - B-cell lymphoma [Fatal]
  - Infection [Recovering/Resolving]
  - Cytokine release syndrome [Recovered/Resolved]
  - Sinus tachycardia [Unknown]
  - Drug ineffective [Fatal]
  - Myopathy [Recovering/Resolving]
  - Bacterial sepsis [Unknown]
  - Bacteraemia [Unknown]
  - B-cell lymphoma recurrent [Not Recovered/Not Resolved]
  - Bacteraemia [Unknown]
  - Hyperglycaemia [Not Recovered/Not Resolved]
  - Haemophagocytic lymphohistiocytosis [Not Recovered/Not Resolved]
  - Atrial fibrillation [Recovering/Resolving]

NARRATIVE: CASE EVENT DATE: 2019
